FAERS Safety Report 9101771 (Version 1)
Quarter: 2013Q1

REPORT INFORMATION
  Report Type: Spontaneous
  Country: US (occurrence: US)
  Receive Date: 20130218
  Receipt Date: 20130218
  Transmission Date: 20140127
  Serious: Yes (Congenital Anomaly, Other)
  Sender: FDA-Public Use
  Company Number: US-MYLANLABS-2013S1002915

PATIENT
  Sex: 0

DRUGS (1)
  1. PAROXETINE TABLETS USP [Suspect]

REACTIONS (5)
  - Congenital anomaly [Not Recovered/Not Resolved]
  - Exomphalos [Not Recovered/Not Resolved]
  - Congenital cardiovascular anomaly [Not Recovered/Not Resolved]
  - Congenital diaphragmatic anomaly [Not Recovered/Not Resolved]
  - Exposure via body fluid [Not Recovered/Not Resolved]
